FAERS Safety Report 16847696 (Version 1)
Quarter: 2019Q3

REPORT INFORMATION
  Report Type: Other
  Country: US (occurrence: US)
  Receive Date: 20190924
  Receipt Date: 20190924
  Transmission Date: 20191005
  Serious: No
  Sender: FDA-Public Use
  Company Number: US-ACORDA-ACO_160266_2019

PATIENT
  Sex: Male
  Weight: 75.28 kg

DRUGS (1)
  1. INBRIJA [Suspect]
     Active Substance: LEVODOPA
     Indication: PARKINSON^S DISEASE
     Dosage: 84 MILLIGRAM, PRN, UP TO 5 TIMES PER DAY

REACTIONS (5)
  - Therapy cessation [Unknown]
  - Malaise [Recovering/Resolving]
  - Influenza [Unknown]
  - Pruritus generalised [Unknown]
  - Hypokinesia [Unknown]
